FAERS Safety Report 7007855-5 (Version None)
Quarter: 2010Q3

REPORT INFORMATION
  Report Type: 
  Country: None (occurrence: None)
  Receive Date: 20100922
  Receipt Date: 20100910
  Transmission Date: 20110219
  Serious: Yes (Other)
  Sender: FDA-Public Use
  Company Number: US-WYE-H17478710

PATIENT
  Sex: Female
  Weight: 68.1 kg

DRUGS (4)
  1. VENLAFAXINE HYDROCHLORIDE [Suspect]
     Indication: DEPRESSION
     Dosage: UNKNOWN
     Route: 048
  2. VENLAFAXINE HYDROCHLORIDE [Suspect]
     Route: 048
  3. VENLAFAXINE HYDROCHLORIDE [Suspect]
     Dosage: DOSE INCREASED (DOSE UNKNOWN)
     Route: 048
  4. PSEUDOEPHEDRINE SULFATE [Concomitant]
     Indication: HYPERSENSITIVITY
     Dosage: UNKNOWN DOSE AS NEEDED
     Route: 065

REACTIONS (2)
  - BREAST CANCER [None]
  - DRUG EFFECT DECREASED [None]
